FAERS Safety Report 8202758-2 (Version None)
Quarter: 2012Q1

REPORT INFORMATION
  Report Type: 
  Country: None (occurrence: None)
  Receive Date: 20120312
  Receipt Date: 20120312
  Transmission Date: 20120608
  Serious: Yes (Life-Threatening, Hospitalization)
  Sender: FDA-Public Use
  Company Number: None

PATIENT
  Age: 43 Year
  Sex: Female
  Weight: 56.245 kg

DRUGS (2)
  1. SCANDONEST PLAIN [Concomitant]
     Dates: start: 20120305, end: 20120305
  2. SCANDONEST PLAIN [Suspect]
     Indication: TOOTH REPAIR
     Dates: start: 20120305, end: 20120305

REACTIONS (13)
  - CONVULSION [None]
  - NAUSEA [None]
  - EYE MOVEMENT DISORDER [None]
  - ANXIETY [None]
  - DYSKINESIA [None]
  - TREMOR [None]
  - DRUG HYPERSENSITIVITY [None]
  - CHEST DISCOMFORT [None]
  - CRYING [None]
  - BACK PAIN [None]
  - FEELING ABNORMAL [None]
  - DYSPNOEA [None]
  - MUSCLE TWITCHING [None]
